FAERS Safety Report 18276933 (Version 1)
Quarter: 2020Q3

REPORT INFORMATION
  Report Type: Spontaneous
  Country: US (occurrence: US)
  Receive Date: 20200916
  Receipt Date: 20200916
  Transmission Date: 20201103
  Serious: Yes (Hospitalization)
  Sender: FDA-Public Use
  Company Number: None

PATIENT
  Sex: Female

DRUGS (1)
  1. OCTREOTIDE. [Suspect]
     Active Substance: OCTREOTIDE
     Indication: MALIGNANT PITUITARY TUMOUR
     Route: 058
     Dates: start: 20200701

REACTIONS (4)
  - Feeling abnormal [None]
  - Hypoaesthesia [None]
  - Dizziness [None]
  - Weight increased [None]
